FAERS Safety Report 11292992 (Version 2)
Quarter: 2015Q3

REPORT INFORMATION
  Report Type: Report from Study
  Country: DE (occurrence: DE)
  Receive Date: 20150722
  Receipt Date: 20150827
  Transmission Date: 20151125
  Serious: Yes (Hospitalization, Other)
  Sender: FDA-Public Use
  Company Number: DE-ABBVIE-15K-062-1428866-00

PATIENT
  Age: 50 Year
  Sex: Male

DRUGS (3)
  1. HYDROXYCHLOROQUINE [Concomitant]
     Active Substance: HYDROXYCHLOROQUINE
     Indication: PRODUCT USED FOR UNKNOWN INDICATION
  2. HUMIRA [Suspect]
     Active Substance: ADALIMUMAB
     Indication: RHEUMATOID ARTHRITIS
     Route: 058
     Dates: start: 20141105, end: 20150619
  3. SULFASALAZINE. [Concomitant]
     Active Substance: SULFASALAZINE
     Indication: PRODUCT USED FOR UNKNOWN INDICATION
     Route: 048
     Dates: start: 201507

REACTIONS (14)
  - Pulmonary embolism [Recovered/Resolved]
  - Blood iron decreased [Unknown]
  - Chest pain [Unknown]
  - Pneumonia [Recovered/Resolved]
  - Pyrexia [Unknown]
  - Lymphadenopathy mediastinal [Unknown]
  - Hypocapnia [Unknown]
  - Serum ferritin increased [Unknown]
  - Sinus tachycardia [Unknown]
  - Feeling abnormal [Recovering/Resolving]
  - Blood lactate dehydrogenase increased [Unknown]
  - Hilar lymphadenopathy [Unknown]
  - Laboratory test abnormal [Unknown]
  - Pleural effusion [Unknown]

NARRATIVE: CASE EVENT DATE: 201506
